FAERS Safety Report 9267363 (Version 8)
Quarter: 2013Q3

REPORT INFORMATION
  Report Type: Spontaneous
  Country: US (occurrence: US)
  Receive Date: 20130502
  Receipt Date: 20130717
  Transmission Date: 20140515
  Serious: Yes (Hospitalization, Other)
  Sender: FDA-Public Use
  Company Number: US-ASTRAZENECA-2011SE68502

PATIENT
  Age: 81 Year
  Sex: Female
  Weight: 56.2 kg

DRUGS (7)
  1. ARIMIDEX [Suspect]
     Indication: BREAST CANCER FEMALE
     Route: 048
     Dates: start: 1998
  2. ARIMIDEX [Suspect]
     Indication: BREAST CANCER FEMALE
     Route: 048
     Dates: start: 2007, end: 201202
  3. ARIMIDEX [Suspect]
     Indication: BREAST CANCER FEMALE
     Dosage: GENERIC
     Route: 065
     Dates: start: 201202
  4. ARIMIDEX [Suspect]
     Indication: BREAST CANCER FEMALE
     Route: 048
     Dates: start: 2012, end: 201306
  5. PRILOSEC [Suspect]
     Route: 048
  6. TAMOXIFEN [Suspect]
     Indication: RECURRENT CANCER
     Route: 065
     Dates: end: 1998
  7. AREDIA [Concomitant]

REACTIONS (24)
  - Autoimmune haemolytic anaemia [Recovered/Resolved]
  - Tumour marker increased [Unknown]
  - Carbohydrate antigen 27.29 increased [Recovering/Resolving]
  - Neoplasm malignant [Unknown]
  - Malaise [Unknown]
  - Pain [Unknown]
  - Dyspnoea [Unknown]
  - Lymphadenopathy [Unknown]
  - Neoplasm progression [Unknown]
  - Carcinoembryonic antigen increased [Unknown]
  - Asthenia [Unknown]
  - Blood bilirubin increased [Unknown]
  - Horner^s syndrome [Unknown]
  - Body height decreased [Unknown]
  - Blood test abnormal [Unknown]
  - Anxiety [Unknown]
  - Renal disorder [Unknown]
  - Neck pain [Unknown]
  - Abdominal pain upper [Unknown]
  - Peptic ulcer [Unknown]
  - Brucellosis [Unknown]
  - Marrow hyperplasia [Unknown]
  - Fatigue [Unknown]
  - Drug dose omission [Unknown]
